FAERS Safety Report 6872262-2 (Version None)
Quarter: 2010Q3

REPORT INFORMATION
  Report Type: 
  Country: None (occurrence: None)
  Receive Date: 20100723
  Receipt Date: 20100707
  Transmission Date: 20110219
  Serious: No
  Sender: FDA-Public Use
  Company Number: US-ROXANE LABORATORIES, INC.-2010-RO-00814RO

PATIENT
  Age: 86 Year
  Sex: Female

DRUGS (1)
  1. LEVETIRACETAM [Suspect]

REACTIONS (3)
  - INSOMNIA [None]
  - MOOD ALTERED [None]
  - NECK PAIN [None]
